FAERS Safety Report 6839543-X (Version None)
Quarter: 2010Q3

REPORT INFORMATION
  Report Type: 
  Country: None (occurrence: None)
  Receive Date: 20100714
  Receipt Date: 20100115
  Transmission Date: 20110219
  Serious: No
  Sender: FDA-Public Use
  Company Number: A0839752A

PATIENT
  Sex: Female

DRUGS (9)
  1. FLOVENT [Suspect]
     Indication: ASTHMA
     Dosage: 1PUFF PER DAY
     Route: 055
  2. SPIRIVA [Concomitant]
  3. XOPENEX [Concomitant]
  4. PREDNISONE [Concomitant]
  5. ACTIGALL [Concomitant]
  6. ATIVAN [Concomitant]
  7. SINGULAIR [Concomitant]
  8. VITAMINS [Concomitant]
  9. CLIMARA [Concomitant]

REACTIONS (2)
  - DYSPHONIA [None]
  - LARYNGEAL OPERATION [None]
